FAERS Safety Report 6649385-6 (Version None)
Quarter: 2010Q1

REPORT INFORMATION
  Report Type: 
  Country: None (occurrence: None)
  Receive Date: 20100324
  Receipt Date: 20100312
  Transmission Date: 20100710
  Serious: Yes (Other)
  Sender: FDA-Public Use
  Company Number: JP-PFIZER INC-2010033567

PATIENT
  Age: 57 Year
  Sex: Female

DRUGS (1)
  1. GABAPEN [Suspect]
     Dosage: UNK

REACTIONS (1)
  - BLOOD CREATININE INCREASED [None]
